APPROVED DRUG PRODUCT: CEDAX
Active Ingredient: CEFTIBUTEN DIHYDRATE
Strength: EQ 180MG BASE/5ML **Federal Register determination that product was not discontinued or withdrawn for safety or effectiveness reasons**
Dosage Form/Route: FOR SUSPENSION;ORAL
Application: N050686 | Product #002
Applicant: BURKE THERAPEUTICS LLC
Approved: Dec 20, 1995 | RLD: Yes | RS: No | Type: DISCN